FAERS Safety Report 25089712 (Version 1)
Quarter: 2025Q1

REPORT INFORMATION
  Report Type: Spontaneous
  Country: US (occurrence: None)
  Receive Date: 20250317
  Receipt Date: 20250317
  Transmission Date: 20250409
  Serious: Yes (Hospitalization)
  Sender: FDA-CTU
  Company Number: None

PATIENT
  Age: 77 Year
  Sex: Male

DRUGS (1)
  1. OBINUTUZUMAB [Suspect]
     Active Substance: OBINUTUZUMAB
     Indication: Neoplasm malignant

REACTIONS (15)
  - Hyperkalaemia [None]
  - Acute respiratory failure [None]
  - Throat tightness [None]
  - Chills [None]
  - Chills [None]
  - Hyperhidrosis [None]
  - Vomiting [None]
  - Headache [None]
  - Back pain [None]
  - Hypoxia [None]
  - Tachycardia [None]
  - Hyponatraemia [None]
  - White blood cell count decreased [None]
  - Blood lactate dehydrogenase increased [None]
  - Hypercoagulation [None]

NARRATIVE: CASE EVENT DATE: 20250214
